FAERS Safety Report 16013641 (Version 1)
Quarter: 2019Q1

REPORT INFORMATION
  Report Type: Spontaneous
  Country: US (occurrence: US)
  Receive Date: 20190227
  Receipt Date: 20190227
  Transmission Date: 20190418
  Serious: No
  Sender: FDA-Public Use
  Company Number: US-SA-2019SA052207

PATIENT
  Sex: Female
  Weight: 100.68 kg

DRUGS (1)
  1. ZANTAC 75 [Suspect]
     Active Substance: RANITIDINE HYDROCHLORIDE
     Indication: PRODUCT USED FOR UNKNOWN INDICATION
     Dosage: UNK
     Route: 065

REACTIONS (5)
  - Wheezing [Unknown]
  - Unevaluable event [Unknown]
  - Sneezing [Unknown]
  - Abdominal pain [Unknown]
  - Epigastric discomfort [Unknown]
